FAERS Safety Report 5299853-7 (Version None)
Quarter: 2007Q2

REPORT INFORMATION
  Report Type: 
  Country: None (occurrence: None)
  Receive Date: 20070417
  Receipt Date: 20070405
  Transmission Date: 20071010
  Serious: Yes (Other)
  Sender: FDA-Public Use
  Company Number: US-PFIZER INC-2007028385

PATIENT
  Sex: Male
  Weight: 63.5 kg

DRUGS (11)
  1. CHANTIX [Suspect]
     Indication: SMOKING CESSATION THERAPY
     Dates: start: 20070101, end: 20070330
  2. NORVASC [Concomitant]
  3. PROGRAF [Concomitant]
  4. CELLCEPT [Concomitant]
  5. PREDNISONE [Concomitant]
  6. ACCUPRIL [Concomitant]
  7. DRUG, UNSPECIFIED [Concomitant]
     Route: 055
  8. PRILOSEC [Concomitant]
  9. METOCLOPRAMIDE [Concomitant]
  10. INSULIN [Concomitant]
  11. ASPIRIN [Concomitant]

REACTIONS (7)
  - BLISTER [None]
  - NAIL GROWTH ABNORMAL [None]
  - OPEN WOUND [None]
  - POOR PERIPHERAL CIRCULATION [None]
  - SENSORY LOSS [None]
  - ULCER [None]
  - WOUND SECRETION [None]
